FAERS Safety Report 6588084 (Version 30)
Quarter: 2013Q4

REPORT INFORMATION
  Report Type: Spontaneous
  Country: US (occurrence: US)
  Receive Date: 20080319
  Receipt Date: 20131007
  Transmission Date: 20140711
  Serious: Yes (Death, Other)
  Sender: FDA-Public Use
  Company Number: PHEH2008US02653

PATIENT
  Age: 69 Year
  Sex: Female
  Weight: 56.24 kg

DRUGS (57)
  1. ZOMETA [Suspect]
     Route: 042
     Dates: end: 200301
  2. AREDIA [Suspect]
     Dosage: 90 MG, QMO
     Route: 042
     Dates: start: 2000
  3. ARIMIDEX ^ZENECA^ [Concomitant]
     Dosage: 1 MG, DAILY
     Route: 048
  4. METHOTREXATE [Concomitant]
  5. PREDNISONE [Concomitant]
     Indication: RHEUMATOID ARTHRITIS
     Dosage: 5 MG, QD
     Route: 048
     Dates: start: 1990
  6. NORVASC                                 /DEN/ [Concomitant]
     Dates: start: 2001
  7. ATENOLOL [Concomitant]
     Dosage: 50 MG, QD
     Route: 048
     Dates: start: 1998
  8. DEMEROL [Concomitant]
     Dosage: 50 MG, UNK
  9. DROPERIDOL [Concomitant]
     Dosage: 0.625 MG, DAILY
  10. PERCOCET [Concomitant]
  11. TORADOL [Concomitant]
     Dosage: 30 MG, DAILY
  12. TAMOXIFEN [Concomitant]
     Dosage: 10 MG, BID
  13. ELAVIL [Concomitant]
     Dosage: 50 MG, QD
  14. XANAX [Concomitant]
     Dosage: 0.5 MG, BID
  15. ULTRAM [Concomitant]
     Dosage: 50 MG / Q4
  16. VIOXX [Concomitant]
     Dosage: 12.5 MG, BID
     Route: 048
  17. SOLU-CORTEF [Concomitant]
     Dosage: 100 MG, UNK
  18. FOLIC ACID [Concomitant]
     Route: 048
  19. MORPHINE [Concomitant]
     Dosage: 2 MG - 4  MG/Q 1-2 HRS PRN
  20. VALIUM [Concomitant]
  21. FOLATE SODIUM [Concomitant]
  22. LASIX [Concomitant]
     Dosage: 40 MG, 3 BY MOUTH, DAILY
  23. CRESTOR [Concomitant]
     Dosage: 5 MG, UNK
  24. WARFARIN [Concomitant]
     Dosage: 2.5 MG, UNK
  25. LOVAZA [Concomitant]
     Dosage: 2 DF, DAILY
  26. RADIATION THERAPY [Concomitant]
  27. CLINDAMYCIN [Concomitant]
  28. AROMASIN [Concomitant]
  29. DARVOCET-N [Concomitant]
  30. AMBIEN [Concomitant]
  31. COLACE [Concomitant]
  32. PROCRIT                            /00909301/ [Concomitant]
  33. NEUPOGEN [Concomitant]
  34. TAXOTERE [Concomitant]
  35. CIPRO ^MILES^ [Concomitant]
  36. XELODA [Concomitant]
  37. CALCITRIOL [Concomitant]
  38. COUMADIN ^BOOTS^ [Concomitant]
  39. CLONIDINE [Concomitant]
  40. ADRIAMYCIN [Concomitant]
  41. FELDENE [Concomitant]
  42. HYDRODIURIL [Concomitant]
  43. HALCION [Concomitant]
  44. SENOKOT                                 /USA/ [Concomitant]
  45. LEXAPRO [Concomitant]
  46. CYMBALTA [Concomitant]
  47. AMITRIPTYLINE [Concomitant]
  48. FASLODEX [Concomitant]
  49. METOPROLOL [Concomitant]
  50. ASPIRIN ^BAYER^ [Concomitant]
  51. NEXIUM [Concomitant]
  52. LYRICA [Concomitant]
  53. FLEXERIL [Concomitant]
  54. CELEBREX [Concomitant]
  55. LIPITOR                                 /NET/ [Concomitant]
  56. TENORMIN [Concomitant]
  57. KLOR-CON [Concomitant]

REACTIONS (142)
  - Breast cancer [Fatal]
  - Osteonecrosis of jaw [Unknown]
  - Anhedonia [Unknown]
  - Osteomyelitis [Unknown]
  - Bone loss [Unknown]
  - Injury [Unknown]
  - Pain [Unknown]
  - Denture wearer [Unknown]
  - Disability [Unknown]
  - Basal cell carcinoma [Unknown]
  - Bone pain [Unknown]
  - Intervertebral disc disorder [Unknown]
  - Cervical cord compression [Unknown]
  - Neck pain [Unknown]
  - Vertebral wedging [Unknown]
  - Orthosis user [Unknown]
  - Atrial fibrillation [Unknown]
  - Atrial flutter [Recovered/Resolved]
  - Deep vein thrombosis [Unknown]
  - Pulmonary embolism [Unknown]
  - Neuropathy peripheral [Unknown]
  - Thrombosis [Unknown]
  - Tic [Recovered/Resolved]
  - Fibromyalgia [Unknown]
  - Hyperlipidaemia [Unknown]
  - Irritable bowel syndrome [Unknown]
  - Musculoskeletal discomfort [Unknown]
  - Bursitis [Unknown]
  - Osteoarthritis [Unknown]
  - Hypokalaemia [Unknown]
  - Anxiety [Unknown]
  - Anaemia [Unknown]
  - Asthenia [Unknown]
  - Paraesthesia [Unknown]
  - Pharyngeal erythema [Unknown]
  - Meningioma [Unknown]
  - Diverticulum intestinal [Unknown]
  - Metastases to spine [Unknown]
  - Granuloma [Unknown]
  - Dental caries [Unknown]
  - Lactose intolerance [Unknown]
  - Hand deformity [Unknown]
  - Primary sequestrum [Unknown]
  - Cerebral atrophy [Unknown]
  - Lumbar spinal stenosis [Unknown]
  - Bone lesion [Unknown]
  - Scoliosis [Unknown]
  - Kyphosis [Unknown]
  - Rib deformity [Unknown]
  - Intervertebral disc protrusion [Unknown]
  - Pericardial effusion [Unknown]
  - Pleural effusion [Unknown]
  - Intervertebral disc degeneration [Unknown]
  - Periodontitis [Unknown]
  - Tooth abscess [Unknown]
  - Eye disorder [Unknown]
  - Pathological fracture [Unknown]
  - Pyogenic granuloma [Unknown]
  - Osteitis [Unknown]
  - Brain cancer metastatic [Unknown]
  - Rib fracture [Unknown]
  - Lung disorder [Unknown]
  - Second primary malignancy [Unknown]
  - Retroperitoneal haematoma [Unknown]
  - Renal atrophy [Unknown]
  - Hiatus hernia [Unknown]
  - Coronary artery disease [Unknown]
  - Insomnia [Unknown]
  - Dyspnoea [Unknown]
  - Cardiac failure congestive [Unknown]
  - Pulmonary hypertension [Unknown]
  - Atelectasis [Unknown]
  - Hypovolaemia [Unknown]
  - Pancreatic atrophy [Unknown]
  - Aortic arteriosclerosis [Unknown]
  - Oedema peripheral [Unknown]
  - Haematuria [Unknown]
  - Skin lesion [Unknown]
  - Synovial cyst [Unknown]
  - Tendon disorder [Unknown]
  - Osteonecrosis [Unknown]
  - Spondylolisthesis [Unknown]
  - Spinal compression fracture [Unknown]
  - Bone deformity [Unknown]
  - Osteosclerosis [Unknown]
  - Intervertebral disc space narrowing [Unknown]
  - Facet joint syndrome [Unknown]
  - Arteriosclerosis coronary artery [Unknown]
  - Osteolysis [Unknown]
  - Febrile neutropenia [Unknown]
  - Fall [Unknown]
  - Lymphoedema [Unknown]
  - Gait disturbance [Unknown]
  - Aortic calcification [Unknown]
  - Brain mass [Unknown]
  - Cerebral calcification [Unknown]
  - Cardiomegaly [Unknown]
  - Oral disorder [Unknown]
  - Dental fistula [Unknown]
  - Haemarthrosis [Unknown]
  - Sinus bradycardia [Unknown]
  - Metastases to mouth [Unknown]
  - Aortic valve incompetence [Unknown]
  - Mitral valve incompetence [Unknown]
  - Tricuspid valve incompetence [Unknown]
  - Neck mass [Unknown]
  - Pancreatic cyst [Unknown]
  - Abdominal pain lower [Unknown]
  - Hypotension [Unknown]
  - Ecchymosis [Unknown]
  - Intra-abdominal haemorrhage [Unknown]
  - Groin pain [Unknown]
  - Arthralgia [Unknown]
  - Alopecia [Unknown]
  - Joint swelling [Unknown]
  - Contusion [Unknown]
  - Pain in extremity [Unknown]
  - Urinary incontinence [Unknown]
  - Thrombophlebitis [Unknown]
  - Leukopenia [Unknown]
  - Depression [Unknown]
  - Musculoskeletal chest pain [Unknown]
  - Chest pain [Unknown]
  - Peripheral vascular disorder [Unknown]
  - Wound infection staphylococcal [Unknown]
  - Device related infection [Unknown]
  - Cellulitis [Unknown]
  - Vascular calcification [Unknown]
  - Metastases to bone [Not Recovered/Not Resolved]
  - Malignant neoplasm progression [Unknown]
  - Keratoacanthoma [Unknown]
  - Squamous cell carcinoma of skin [Unknown]
  - Exposed bone in jaw [Unknown]
  - Arthritis [Unknown]
  - Ear pain [Unknown]
  - Tooth loss [Unknown]
  - Gingival recession [Unknown]
  - Gingival oedema [Unknown]
  - Purulent discharge [Unknown]
  - Gingival bleeding [Unknown]
  - Tooth deposit [Unknown]
  - Nasopharyngitis [Unknown]
